FAERS Safety Report 5692837-6 (Version None)
Quarter: 2008Q2

REPORT INFORMATION
  Report Type: 
  Country: None (occurrence: None)
  Receive Date: 20080401
  Receipt Date: 20080319
  Transmission Date: 20081010
  Serious: No
  Sender: FDA-Public Use
  Company Number: 2008AL001778

PATIENT
  Age: 7 Year
  Sex: Male

DRUGS (3)
  1. IBUPROFEN [Suspect]
     Indication: JUVENILE ARTHRITIS
     Dosage: 10 MG/KG; Q8H;
  2. INDOMETHACIN [Concomitant]
  3. DICLOFENAC SODIUM [Concomitant]

REACTIONS (3)
  - DEHYDRATION [None]
  - RENAL FAILURE ACUTE [None]
  - VOMITING [None]
